FAERS Safety Report 13983559 (Version 1)
Quarter: 2017Q3

REPORT INFORMATION
  Report Type: Spontaneous
  Country: JP (occurrence: JP)
  Receive Date: 20170918
  Receipt Date: 20170918
  Transmission Date: 20171128
  Serious: Yes (Death, Other)
  Sender: FDA-Public Use
  Company Number: JP-AMGEN-JPNSP2017141036

PATIENT
  Sex: Male

DRUGS (1)
  1. PARSABIV [Suspect]
     Active Substance: ETELCALCETIDE HYDROCHLORIDE
     Indication: HYPERPARATHYROIDISM SECONDARY
     Dosage: 5 MG, Q3WK
     Route: 042
     Dates: start: 20170724, end: 20170904

REACTIONS (1)
  - Cardiac failure acute [Fatal]

NARRATIVE: CASE EVENT DATE: 20170904
